FAERS Safety Report 9759635 (Version 2)
Quarter: 2015Q3

REPORT INFORMATION
  Report Type: Spontaneous
  Country: US (occurrence: US)
  Receive Date: 20131216
  Receipt Date: 20150806
  Transmission Date: 20151125
  Serious: No
  Sender: FDA-Public Use
  Company Number: US-GILEAD-2010-0028260

PATIENT
  Age: 62 Year
  Sex: Female
  Weight: 113.4 kg

DRUGS (20)
  1. LASIX [Concomitant]
     Active Substance: FUROSEMIDE
  2. DIOVAN HCT [Concomitant]
     Active Substance: HYDROCHLOROTHIAZIDE\VALSARTAN
  3. VITAMIN C [Concomitant]
     Active Substance: ASCORBIC ACID
  4. ACAI BERRY [Concomitant]
  5. PRAVACHOL [Concomitant]
     Active Substance: PRAVASTATIN SODIUM
  6. NEURONTIN [Concomitant]
     Active Substance: GABAPENTIN
  7. L-GLUTATHIONE [Concomitant]
     Active Substance: GLUTATHIONE
  8. LEVOTHYROXINE. [Concomitant]
     Active Substance: LEVOTHYROXINE
  9. XANAX [Concomitant]
     Active Substance: ALPRAZOLAM
  10. GLUCOPHAGE [Concomitant]
     Active Substance: METFORMIN HYDROCHLORIDE
  11. PROBIOTIC FORMULA [Concomitant]
  12. DAILY MULTIVITAMIN [Concomitant]
     Active Substance: VITAMINS
  13. LETAIRIS [Suspect]
     Active Substance: AMBRISENTAN
     Indication: PULMONARY ARTERIAL HYPERTENSION
     Route: 048
     Dates: start: 20100115
  14. CARDIZEM CD [Concomitant]
     Active Substance: DILTIAZEM HYDROCHLORIDE
  15. VITAMIN D [Concomitant]
     Active Substance: CHOLECALCIFEROL
  16. PLAVIX [Concomitant]
     Active Substance: CLOPIDOGREL BISULFATE
  17. POTASSIUM CHLORIDE. [Concomitant]
     Active Substance: POTASSIUM CHLORIDE
  18. ALLEGRA [Concomitant]
     Active Substance: FEXOFENADINE HYDROCHLORIDE
  19. PREVACID [Concomitant]
     Active Substance: LANSOPRAZOLE
  20. FISH OIL [Concomitant]
     Active Substance: FISH OIL

REACTIONS (2)
  - Haemoglobin decreased [Unknown]
  - Haematocrit decreased [Unknown]
